FAERS Safety Report 23802740 (Version 2)
Quarter: 2024Q2

REPORT INFORMATION
  Report Type: Report from Study
  Country: US (occurrence: US)
  Receive Date: 20240501
  Receipt Date: 20240510
  Transmission Date: 20240716
  Serious: Yes (Other)
  Sender: FDA-Public Use
  Company Number: US-SA-SAC20240423001108

PATIENT
  Age: 35 Year
  Sex: Female

DRUGS (4)
  1. CAPLACIZUMAB-YHDP [Suspect]
     Active Substance: CAPLACIZUMAB-YHDP
     Indication: Thrombotic thrombocytopenic purpura
     Dosage: 11 (UNITS: NOT REPORTED), QD
     Route: 058
     Dates: start: 20240403, end: 20240420
  2. CAPLACIZUMAB-YHDP [Suspect]
     Active Substance: CAPLACIZUMAB-YHDP
     Indication: Thrombotic thrombocytopenic purpura
     Dosage: 11 (UNITS: NOT REPORTED), QD
     Route: 058
     Dates: start: 20240403, end: 20240420
  3. CAPLACIZUMAB-YHDP [Suspect]
     Active Substance: CAPLACIZUMAB-YHDP
     Indication: Thrombotic thrombocytopenic purpura
     Dosage: 11 (UNITS: NOT REPORTED), QD
     Route: 058
     Dates: start: 20240403, end: 20240420
  4. CAPLACIZUMAB-YHDP [Suspect]
     Active Substance: CAPLACIZUMAB-YHDP
     Indication: Thrombotic thrombocytopenic purpura
     Dosage: 11 (UNITS: NOT REPORTED), QD
     Route: 058
     Dates: start: 20240403, end: 20240420

REACTIONS (7)
  - Hemiplegia [Unknown]
  - Pulmonary embolism [Unknown]
  - Cognitive disorder [Unknown]
  - Aphasia [Unknown]
  - Movement disorder [Unknown]
  - Hypokinesia [Unknown]
  - Ecchymosis [Unknown]

NARRATIVE: CASE EVENT DATE: 20240401
